FAERS Safety Report 7168071-X (Version None)
Quarter: 2010Q4

REPORT INFORMATION
  Report Type: 
  Country: None (occurrence: None)
  Receive Date: 20101216
  Receipt Date: 20101205
  Transmission Date: 20110411
  Serious: Yes (Hospitalization)
  Sender: FDA-Public Use
  Company Number: PHHY2010DE82891

PATIENT
  Sex: Female

DRUGS (6)
  1. AMN107 AMN+ [Suspect]
     Dosage: 800 MG DAILY
     Route: 048
     Dates: start: 20100202, end: 20100211
  2. AMN107 AMN+ [Suspect]
     Dosage: UNK
     Dates: start: 20100222, end: 20100302
  3. DECORTIN [Concomitant]
     Indication: COMPUTERISED TOMOGRAM ABNORMAL
  4. RANITIC [Concomitant]
     Indication: COMPUTERISED TOMOGRAM ABNORMAL
  5. TAVEGIL [Concomitant]
     Indication: COMPUTERISED TOMOGRAM ABNORMAL
  6. IRENAT [Concomitant]
     Indication: COMPUTERISED TOMOGRAM ABNORMAL

REACTIONS (6)
  - BRONCHOPNEUMONIA [None]
  - CARDIAC FAILURE [None]
  - LUNG INFILTRATION [None]
  - PALPITATIONS [None]
  - PANCYTOPENIA [None]
  - THROMBOCYTOPENIA [None]
